FAERS Safety Report 25887224 (Version 1)
Quarter: 2025Q4

REPORT INFORMATION
  Report Type: Spontaneous
  Country: EU (occurrence: EU)
  Receive Date: 20251006
  Receipt Date: 20251006
  Transmission Date: 20260118
  Serious: Yes (Life-Threatening, Hospitalization)
  Sender: REGENERON
  Company Number: None

PATIENT
  Age: 31 Year
  Sex: Female

DRUGS (3)
  1. CEMIPLIMAB [Suspect]
     Active Substance: CEMIPLIMAB
     Indication: Uterine cancer
     Dosage: CEMIPLIMAB 350 MG EVERY 3 WEEKS
     Route: 042
     Dates: start: 20250225, end: 20250830
  2. TIROSINT [Concomitant]
     Active Substance: LEVOTHYROXINE SODIUM
     Indication: Hypothyroidism
     Dosage: TIROSINT 150 MCG + 75 MCG ONCE DAILY
     Route: 048
  3. PREDNISONE [Concomitant]
     Active Substance: PREDNISONE
     Indication: Thyroiditis
     Dosage: 25 MG 1 TABLET AT 8:00 AM
     Route: 048

REACTIONS (3)
  - Pancytopenia [Not Recovered/Not Resolved]
  - Hypothyroidism [Recovering/Resolving]
  - Serositis [Recovering/Resolving]

NARRATIVE: CASE EVENT DATE: 20250812
